FAERS Safety Report 18627695 (Version 1)
Quarter: 2020Q4

REPORT INFORMATION
  Report Type: Spontaneous
  Country: RO (occurrence: RO)
  Receive Date: 20201217
  Receipt Date: 20201217
  Transmission Date: 20210114
  Serious: Yes (Other)
  Sender: FDA-Public Use
  Company Number: RO-009507513-2012ROM005455

PATIENT
  Age: 78 Year
  Sex: Female

DRUGS (1)
  1. PEMBROLIZUMAB. [Suspect]
     Active Substance: PEMBROLIZUMAB
     Indication: MALIGNANT MELANOMA
     Dates: start: 20190909

REACTIONS (5)
  - Ascites [Unknown]
  - Hyperthyroidism [Unknown]
  - Lymphadenopathy [Unknown]
  - Hepatic mass [Unknown]
  - Bone lesion [Unknown]

NARRATIVE: CASE EVENT DATE: 201912
